FAERS Safety Report 6839783-X (Version None)
Quarter: 2010Q3

REPORT INFORMATION
  Report Type: 
  Country: None (occurrence: None)
  Receive Date: 20100708
  Receipt Date: 20100623
  Transmission Date: 20110219
  Serious: Yes (Hospitalization)
  Sender: FDA-Public Use
  Company Number: 631176

PATIENT
  Age: 52 Year
  Sex: Female

DRUGS (5)
  1. CARBOPLATIN [Suspect]
     Dosage: 232 MG MILLIGRAM(S), 1 WEEK, INTRAVENOUS
     Route: 042
     Dates: start: 20100611, end: 20100622
  2. ZANTAC [Concomitant]
  3. (ANGIZEM) [Concomitant]
  4. (PERIDON /00498201/) [Concomitant]
  5. (LEXOTAN) [Concomitant]

REACTIONS (4)
  - HYPERTENSIVE CRISIS [None]
  - OEDEMA PERIPHERAL [None]
  - PRURITUS [None]
  - RASH GENERALISED [None]
